FAERS Safety Report 4710432-X (Version None)
Quarter: 2005Q3

REPORT INFORMATION
  Report Type: 
  Country: None (occurrence: None)
  Receive Date: 20050707
  Receipt Date: 20050629
  Transmission Date: 20060218
  Serious: Yes (Hospitalization)
  Sender: FDA-Public Use
  Company Number: US-2005-008404

PATIENT
  Age: 50 Year
  Sex: Female
  Weight: 68 kg

DRUGS (4)
  1. BETASERON [Suspect]
     Indication: RELAPSING-REMITTING MULTIPLE SCLEROSIS
     Dosage: 8 MIU, EVERY 2D, SUBCUTANEOUS
     Route: 058
     Dates: start: 20031201, end: 20050103
  2. BETASERON [Suspect]
     Indication: RELAPSING-REMITTING MULTIPLE SCLEROSIS
     Dosage: 8 MIU, EVERY 2D, SUBCUTANEOUS
     Route: 058
     Dates: start: 20050328
  3. LIPITOR     /NET/ (ATORVASTATIN CALCIUM) TABLET [Concomitant]
  4. FLUOXETINE (FLUOXETINE) CAPSULE [Concomitant]

REACTIONS (3)
  - DEPRESSION [None]
  - PLEURAL EFFUSION [None]
  - RELAPSING-REMITTING MULTIPLE SCLEROSIS [None]
